FAERS Safety Report 8092728-X (Version None)
Quarter: 2012Q1

REPORT INFORMATION
  Report Type: 
  Country: None (occurrence: None)
  Receive Date: 20120128
  Receipt Date: 20110802
  Transmission Date: 20120608
  Serious: No
  Sender: FDA-Public Use
  Company Number: US-ABBOTT-11P-163-0844055-00

PATIENT
  Sex: Female
  Weight: 90.8 kg

DRUGS (8)
  1. CELEBREX [Concomitant]
     Indication: RHEUMATOID ARTHRITIS
  2. HUMIRA [Suspect]
     Indication: RHEUMATOID ARTHRITIS
     Dates: start: 20090101
  3. PREDNISONE TAB [Concomitant]
     Indication: RHEUMATOID ARTHRITIS
  4. NAPROCIN [Concomitant]
     Indication: RHEUMATOID ARTHRITIS
  5. METFORMIN HCL [Concomitant]
     Indication: DIABETES MELLITUS
  6. PLAQUENIL [Concomitant]
     Indication: RHEUMATOID ARTHRITIS
  7. CALCIUM [Concomitant]
     Indication: MINERAL SUPPLEMENTATION
  8. METHOTREXATE [Concomitant]
     Indication: RHEUMATOID ARTHRITIS

REACTIONS (4)
  - ARTHRITIS [None]
  - DEPRESSION [None]
  - PAIN IN EXTREMITY [None]
  - MALAISE [None]
